FAERS Safety Report 5848809-1 (Version None)
Quarter: 2008Q3

REPORT INFORMATION
  Report Type: 
  Country: None (occurrence: None)
  Receive Date: 20080818
  Receipt Date: 20080807
  Transmission Date: 20090109
  Serious: Yes (Other)
  Sender: FDA-Public Use
  Company Number: JP-PFIZER INC-2008066460

PATIENT
  Age: 90 Year
  Sex: Male

DRUGS (5)
  1. DETRUSITOL LA [Suspect]
     Indication: NOCTURIA
     Dosage: DAILY DOSE:4MG
     Route: 048
     Dates: start: 20080516, end: 20080625
  2. ISCOTIN [Concomitant]
     Route: 048
  3. URSO 250 [Concomitant]
     Route: 048
  4. MELOXICAM [Concomitant]
     Route: 048
  5. ARICEPT [Concomitant]
     Route: 048

REACTIONS (2)
  - ASPARTATE AMINOTRANSFERASE INCREASED [None]
  - BLOOD POTASSIUM INCREASED [None]
